FAERS Safety Report 5418222-X (Version None)
Quarter: 2007Q3

REPORT INFORMATION
  Report Type: 
  Country: None (occurrence: None)
  Receive Date: 20070817
  Receipt Date: 20070807
  Transmission Date: 20080115
  Serious: Yes (Disabling)
  Sender: FDA-Public Use
  Company Number: TH-ROCHE-510661

PATIENT
  Age: 64 Year
  Sex: Male
  Weight: 38.9 kg

DRUGS (7)
  1. ENFUVIRTIDE [Suspect]
     Indication: HIV INFECTION
     Route: 058
     Dates: start: 20060124
  2. INDINAVIR [Suspect]
     Indication: DRUG USE FOR UNKNOWN INDICATION
     Route: 065
     Dates: start: 20040721
  3. RITONAVIR [Concomitant]
     Dates: start: 20040721
  4. ABACAVIR [Concomitant]
     Dates: start: 20060829
  5. LAMIVUDINE [Concomitant]
     Dates: start: 20010411
  6. COTRIM [Concomitant]
     Dates: start: 20010101
  7. FENOFIBRATE [Concomitant]
     Dates: start: 20070320

REACTIONS (1)
  - PROTEINURIA [None]
